FAERS Safety Report 18777993 (Version 1)
Quarter: 2021Q1

REPORT INFORMATION
  Report Type: Spontaneous
  Country: ES (occurrence: ES)
  Receive Date: 20210122
  Receipt Date: 20210122
  Transmission Date: 20210419
  Serious: No
  Sender: FDA-Public Use
  Company Number: ES-LUPIN PHARMACEUTICALS INC.-2020-01899

PATIENT
  Age: 38 Year
  Sex: Male

DRUGS (26)
  1. OLANZAPINE. [Suspect]
     Active Substance: OLANZAPINE
     Indication: IRRITABILITY
     Dosage: 15 MILLIGRAM, QD
     Route: 065
  2. OLANZAPINE. [Suspect]
     Active Substance: OLANZAPINE
     Indication: RESTLESSNESS
  3. METHADONE [Concomitant]
     Active Substance: METHADONE HYDROCHLORIDE
     Indication: SUBSTANCE USE DISORDER
     Dosage: 60 MILLIGRAM, QD
     Route: 065
  4. OLANZAPINE. [Suspect]
     Active Substance: OLANZAPINE
     Indication: HALLUCINATION
  5. RISPERIDONE. [Suspect]
     Active Substance: RISPERIDONE
     Indication: PSYCHOTIC SYMPTOM
  6. PALIPERIDONE. [Suspect]
     Active Substance: PALIPERIDONE
     Indication: HALLUCINATION, AUDITORY
     Dosage: 6 MILLIGRAM, QD
     Route: 065
  7. PALIPERIDONE. [Suspect]
     Active Substance: PALIPERIDONE
     Indication: RESTLESSNESS
  8. PALIPERIDONE. [Suspect]
     Active Substance: PALIPERIDONE
     Indication: PERSECUTORY DELUSION
  9. QUETIAPINE FUMARATE. [Suspect]
     Active Substance: QUETIAPINE FUMARATE
     Indication: PSYCHOTIC SYMPTOM
  10. QUETIAPINE FUMARATE. [Suspect]
     Active Substance: QUETIAPINE FUMARATE
     Indication: RESTLESSNESS
  11. QUETIAPINE FUMARATE. [Suspect]
     Active Substance: QUETIAPINE FUMARATE
     Indication: HALLUCINATION
  12. QUETIAPINE FUMARATE. [Suspect]
     Active Substance: QUETIAPINE FUMARATE
     Indication: PERSECUTORY DELUSION
  13. RISPERIDONE. [Suspect]
     Active Substance: RISPERIDONE
     Indication: HALLUCINATION, AUDITORY
     Dosage: 3 MILLIGRAM, QD
     Route: 065
  14. OLANZAPINE. [Suspect]
     Active Substance: OLANZAPINE
     Indication: HALLUCINATION, AUDITORY
  15. RISPERIDONE. [Suspect]
     Active Substance: RISPERIDONE
     Indication: HALLUCINATION
  16. PALIPERIDONE. [Suspect]
     Active Substance: PALIPERIDONE
     Indication: HALLUCINATION
  17. QUETIAPINE FUMARATE. [Suspect]
     Active Substance: QUETIAPINE FUMARATE
     Indication: HALLUCINATION, AUDITORY
     Dosage: 250 MILLIGRAM, QD
     Route: 065
  18. RISPERIDONE. [Suspect]
     Active Substance: RISPERIDONE
     Indication: RESTLESSNESS
  19. RISPERIDONE. [Suspect]
     Active Substance: RISPERIDONE
     Indication: PERSECUTORY DELUSION
  20. PALIPERIDONE. [Suspect]
     Active Substance: PALIPERIDONE
     Indication: IRRITABILITY
  21. PALIPERIDONE. [Suspect]
     Active Substance: PALIPERIDONE
     Indication: PSYCHOTIC SYMPTOM
  22. QUETIAPINE FUMARATE. [Suspect]
     Active Substance: QUETIAPINE FUMARATE
     Indication: IRRITABILITY
  23. OLANZAPINE. [Suspect]
     Active Substance: OLANZAPINE
     Indication: PERSECUTORY DELUSION
  24. OLANZAPINE. [Suspect]
     Active Substance: OLANZAPINE
     Indication: PSYCHOTIC SYMPTOM
  25. RISPERIDONE. [Suspect]
     Active Substance: RISPERIDONE
     Indication: IRRITABILITY
  26. PREGABALIN. [Concomitant]
     Active Substance: PREGABALIN
     Indication: ANXIETY DISORDER
     Dosage: 150 MILLIGRAM, QD
     Route: 065

REACTIONS (3)
  - Therapeutic product effect incomplete [Unknown]
  - Drug intolerance [Unknown]
  - Somnolence [Unknown]
